FAERS Safety Report 5928355-7 (Version None)
Quarter: 2008Q4

REPORT INFORMATION
  Report Type: 
  Country: None (occurrence: None)
  Receive Date: 20081023
  Receipt Date: 20081021
  Transmission Date: 20090506
  Serious: Yes (Hospitalization)
  Sender: FDA-Public Use
  Company Number: US-BRISTOL-MYERS SQUIBB COMPANY-14378244

PATIENT
  Age: 65 Year
  Sex: Male
  Weight: 62 kg

DRUGS (3)
  1. ERBITUX [Suspect]
     Indication: HEAD AND NECK CANCER
     Dosage: INITIAL INFUSION STARTED ON 17SEP08.
     Dates: start: 20081020, end: 20081020
  2. CISPLATIN [Suspect]
     Indication: HEAD AND NECK CANCER
     Dosage: INITIAL INFUSION STARTED ON 17SEP08.
     Dates: start: 20080922, end: 20080922
  3. RADIATION THERAPY [Suspect]
     Indication: HEAD AND NECK CANCER
     Dosage: 1 DF = 4600 CGY, 35FRACTIONS, 30ELASPSED DAYS.
     Dates: start: 20081017, end: 20081017

REACTIONS (1)
  - THROMBOSIS [None]
